FAERS Safety Report 8176818-9 (Version None)
Quarter: 2012Q1

REPORT INFORMATION
  Report Type: 
  Country: None (occurrence: None)
  Receive Date: 20120228
  Receipt Date: 20120220
  Transmission Date: 20120608
  Serious: Yes (Death)
  Sender: FDA-Public Use
  Company Number: 1202856

PATIENT
  Age: 52 Year
  Sex: Female

DRUGS (8)
  1. (TEVAGASTRIM) [Suspect]
     Indication: PRODUCT USED FOR UNKNOWN INDICATION
     Dosage: 345 UG MICROGRAM(S), SUBCUTANEOUS
     Route: 058
     Dates: start: 20120125, end: 20120128
  2. (SOLDESMAN) [Concomitant]
  3. DOCETAXEL [Suspect]
     Indication: BREAST CANCER
     Dosage: 136 MG MILLIGRAM(S) INTRAVENOUS (NOT OTHERWISE SPECIFIED)
     Route: 042
     Dates: start: 20120120, end: 20120120
  4. EPIRUBICIN [Suspect]
     Indication: BREAST CANCER
     Dosage: 136 MG MILLIGRAM(S) INTRAVENOUS (NOT OTHERWISE SPECIFIED)
     Route: 042
     Dates: start: 20120120, end: 20120120
  5. (RANIDIL) [Concomitant]
  6. (TRIMETON /00072502/) [Concomitant]
  7. EMEND [Concomitant]
  8. ZOFRAN [Concomitant]

REACTIONS (3)
  - HYPOVOLAEMIC SHOCK [None]
  - LEUKOPENIA [None]
  - INTESTINAL ISCHAEMIA [None]
